FAERS Safety Report 5711735-2 (Version None)
Quarter: 2008Q2

REPORT INFORMATION
  Report Type: 
  Country: None (occurrence: None)
  Receive Date: 20080421
  Receipt Date: 20080409
  Transmission Date: 20081010
  Serious: Yes (Other)
  Sender: FDA-Public Use
  Company Number: US-PFIZER INC-2008012748

PATIENT
  Sex: Female
  Weight: 54.4 kg

DRUGS (8)
  1. DEPO SUB-Q PROVERA 104 SYRINGE [Suspect]
     Indication: CONTRACEPTION
     Route: 058
     Dates: start: 20060628, end: 20060628
  2. DEPO SUB-Q PROVERA 104 SYRINGE [Suspect]
     Route: 058
     Dates: start: 20060922, end: 20060922
  3. DEPO SUB-Q PROVERA 104 SYRINGE [Suspect]
     Route: 058
     Dates: start: 20061213, end: 20061213
  4. DEPO SUB-Q PROVERA 104 SYRINGE [Suspect]
     Route: 058
     Dates: start: 20070309, end: 20070309
  5. DEPO SUB-Q PROVERA 104 SYRINGE [Suspect]
     Route: 058
     Dates: start: 20070530, end: 20070530
  6. DEPO SUB-Q PROVERA 104 SYRINGE [Suspect]
     Route: 058
     Dates: start: 20070822, end: 20070822
  7. DEPO SUB-Q PROVERA 104 SYRINGE [Suspect]
     Route: 058
     Dates: start: 20071114, end: 20071114
  8. DEPO SUB-Q PROVERA 104 SYRINGE [Suspect]
     Route: 058
     Dates: start: 20080206, end: 20080206

REACTIONS (1)
  - INJECTION SITE REACTION [None]
